FAERS Safety Report 10526826 (Version 2)
Quarter: 2018Q1

REPORT INFORMATION
  Report Type: Spontaneous
  Country: CA (occurrence: CA)
  Receive Date: 20141020
  Receipt Date: 20180308
  Transmission Date: 20180508
  Serious: Yes (Other)
  Sender: FDA-Public Use
  Company Number: CA-009507513-1410CAN007729

PATIENT
  Age: 83 Year
  Sex: Male

DRUGS (2)
  1. CANCIDAS [Suspect]
     Active Substance: CASPOFUNGIN ACETATE
     Dosage: 70 MG, UNK
     Route: 042
     Dates: start: 20140516, end: 20140530
  2. SODIUM CHLORIDE. [Concomitant]
     Active Substance: SODIUM CHLORIDE

REACTIONS (9)
  - Abnormal behaviour [Unknown]
  - Hypertension [Unknown]
  - Tremor [Unknown]
  - Disorientation [Unknown]
  - Heart rate increased [Unknown]
  - Mobility decreased [Unknown]
  - Dyspnoea [Unknown]
  - Body temperature increased [Unknown]
  - Rash [Unknown]

NARRATIVE: CASE EVENT DATE: 20140516
